FAERS Safety Report 5809589-9 (Version None)
Quarter: 2008Q3

REPORT INFORMATION
  Report Type: 
  Country: None (occurrence: None)
  Receive Date: 20080709
  Receipt Date: 20080625
  Transmission Date: 20090109
  Serious: Yes (Death)
  Sender: FDA-Public Use
  Company Number: 2008US001666

PATIENT
  Age: 58 Year
  Sex: Male

DRUGS (6)
  1. PROGRAF [Suspect]
     Indication: RENAL TRANSPLANT
     Dosage: 6 MG, UID/QD, ORAL
     Route: 048
  2. PREDNISOLONE [Concomitant]
  3. MYCOPHENOLATE (MYCOPHENOLATE MOFETIL) [Concomitant]
  4. LOSARTAN POTASSIUM [Concomitant]
  5. PRAZOSIN GITS [Concomitant]
  6. METOPROLOL TARTRATE [Concomitant]

REACTIONS (1)
  - GASTRIC INFECTION [None]
